FAERS Safety Report 7790555-1 (Version None)
Quarter: 2011Q3

REPORT INFORMATION
  Report Type: 
  Country: None (occurrence: None)
  Receive Date: 20110930
  Receipt Date: 20110610
  Transmission Date: 20111222
  Serious: No
  Sender: FDA-Public Use
  Company Number: US-BAYER-2011-050522

PATIENT
  Age: 82 Year
  Sex: Female

DRUGS (5)
  1. ATENOLOL [Concomitant]
  2. EFFEXOR [Concomitant]
  3. HYZAAR [Concomitant]
  4. TRILIPIX [Concomitant]
  5. AVELOX [Suspect]
     Indication: INFECTION
     Dosage: 400 MG, QD
     Route: 048
     Dates: start: 20110607

REACTIONS (2)
  - NAUSEA [None]
  - VOMITING [None]
